FAERS Safety Report 11225668 (Version 1)
Quarter: 2015Q2

REPORT INFORMATION
  Report Type: Spontaneous
  Country: US (occurrence: US)
  Receive Date: 20150629
  Receipt Date: 20150629
  Transmission Date: 20150821
  Serious: No
  Sender: FDA-Public Use
  Company Number: US-BAUSCH-SYM-2014-24115

PATIENT
  Sex: Male
  Weight: 77.18 kg

DRUGS (2)
  1. LEXAPRO [Concomitant]
     Active Substance: ESCITALOPRAM OXALATE
     Indication: PRODUCT USED FOR UNKNOWN INDICATION
     Dates: start: 2014
  2. SOLODYN [Suspect]
     Active Substance: MINOCYCLINE HYDROCHLORIDE
     Indication: ACNE
     Route: 048
     Dates: start: 2014, end: 20140804

REACTIONS (2)
  - Dental caries [Unknown]
  - Tooth discolouration [Unknown]

NARRATIVE: CASE EVENT DATE: 2014
